FAERS Safety Report 14590373 (Version 1)
Quarter: 2018Q1

REPORT INFORMATION
  Report Type: Spontaneous
  Country: US (occurrence: US)
  Receive Date: 20180302
  Receipt Date: 20180302
  Transmission Date: 20180509
  Serious: No
  Sender: FDA-Public Use
  Company Number: US-PFIZER INC-2018087383

PATIENT
  Age: 61 Year
  Sex: Male
  Weight: 95.71 kg

DRUGS (1)
  1. MORPHINE SULFATE. [Suspect]
     Active Substance: MORPHINE SULFATE
     Dosage: 120 MG, DAILY

REACTIONS (1)
  - Drug ineffective [Unknown]
